FAERS Safety Report 4870573-3 (Version None)
Quarter: 2006Q1

REPORT INFORMATION
  Report Type: 
  Country: None (occurrence: None)
  Receive Date: 20060103
  Receipt Date: 20051222
  Transmission Date: 20060701
  Serious: Yes (Death)
  Sender: FDA-Public Use
  Company Number: US-BRISTOL-MYERS SQUIBB COMPANY-13226345

PATIENT
  Age: 88 Year
  Sex: Female
  Weight: 41 kg

DRUGS (5)
  1. COUMADIN [Suspect]
  2. NORVASC [Concomitant]
  3. PREVACID [Concomitant]
  4. DIOVAN [Concomitant]
  5. ZOCOR [Concomitant]

REACTIONS (1)
  - DEATH [None]
